FAERS Safety Report 22137528 (Version 3)
Quarter: 2023Q2

REPORT INFORMATION
  Report Type: Report from Study
  Country: US (occurrence: US)
  Receive Date: 20230325
  Receipt Date: 20230613
  Transmission Date: 20230721
  Serious: No
  Sender: FDA-Public Use
  Company Number: US-002147023-NVSC2023US068898

PATIENT
  Sex: Female

DRUGS (1)
  1. COSENTYX [Suspect]
     Active Substance: SECUKINUMAB
     Indication: Psoriasis
     Dosage: 300 MG, QMO
     Route: 058
     Dates: start: 202212

REACTIONS (9)
  - Fatigue [Unknown]
  - Influenza [Unknown]
  - Cough [Unknown]
  - Nasopharyngitis [Unknown]
  - Arthralgia [Unknown]
  - Middle insomnia [Unknown]
  - Bone disorder [Unknown]
  - Meniscus injury [Unknown]
  - Migraine [Unknown]
